FAERS Safety Report 5236873-2 (Version None)
Quarter: 2007Q1

REPORT INFORMATION
  Report Type: 
  Country: None (occurrence: None)
  Receive Date: 20070213
  Receipt Date: 20060317
  Transmission Date: 20070707
  Serious: No
  Sender: FDA-Public Use
  Company Number: US-BRISTOL-MYERS SQUIBB COMPANY-13319199

PATIENT
  Age: 80 Year
  Sex: Female
  Weight: 64 kg

DRUGS (4)
  1. KENALOG [Suspect]
     Indication: DANDRUFF
  2. INDERAL [Concomitant]
  3. PREMARIN [Concomitant]
  4. GLYBURIDE [Concomitant]

REACTIONS (1)
  - ALOPECIA [None]
